FAERS Safety Report 19821930 (Version 2)
Quarter: 2021Q4

REPORT INFORMATION
  Report Type: Spontaneous
  Country: US (occurrence: US)
  Receive Date: 20210913
  Receipt Date: 20211004
  Transmission Date: 20220304
  Serious: No
  Sender: FDA-Public Use
  Company Number: US-AMGEN-USASP2021136298

PATIENT
  Age: 74 Year
  Sex: Female

DRUGS (1)
  1. REPATHA [Suspect]
     Active Substance: EVOLOCUMAB
     Indication: Hypercholesterolaemia
     Dosage: 420 MILLIGRAM, QMO
     Route: 065
     Dates: start: 20210812

REACTIONS (10)
  - Appetite disorder [Unknown]
  - Thirst [Unknown]
  - Insomnia [Unknown]
  - Pollakiuria [Unknown]
  - Feeling abnormal [Unknown]
  - Dysphonia [Unknown]
  - Blood glucose increased [Unknown]
  - Rhinorrhoea [Unknown]
  - Myalgia [Unknown]
  - Back pain [Unknown]

NARRATIVE: CASE EVENT DATE: 20210801
